FAERS Safety Report 9170876 (Version 4)
Quarter: 2013Q2

REPORT INFORMATION
  Report Type: Spontaneous
  Country: DE (occurrence: None)
  Receive Date: 20130312
  Receipt Date: 20130508
  Transmission Date: 20140414
  Serious: Yes (Hospitalization)
  Sender: FDA-Public Use
  Company Number: 2013MPI00108

PATIENT
  Age: 19 Year
  Sex: Female

DRUGS (9)
  1. BRENTUXIMABVEDOTIN [Suspect]
     Indication: HODGKIN^S DISEASE
     Dosage: 1.8MG/KG, QCYCLE, INTRAVENOUS
     Route: 042
     Dates: start: 20130212, end: 20130212
  2. CYCLOPHOSPHAMIDE [Suspect]
     Indication: HODGKIN^S DISEASE
     Dosage: 1250 MG/M2, QCYCLE
     Dates: start: 20130213, end: 20130213
  3. DOXORUBICIN [Suspect]
     Indication: HODGKIN^S DISEASE
     Dosage: 40MG/M2, QCYCLE
     Dates: start: 20130213, end: 20130213
  4. ETOPOSIDE [Suspect]
     Indication: HODGKIN^S DISEASE
     Dosage: 150 MG/M2, QCYCLE
     Dates: start: 20130213, end: 20130215
  5. DACARBAZINE [Suspect]
     Indication: HODGKIN^S DISEASE
     Dosage: 250 MG/M2, QCYCLE
     Dates: start: 20130214, end: 20130215
  6. DEXAMETHASONE [Suspect]
     Indication: HODGKIN^S DISEASE
     Dosage: 40MG, QCYCLE
     Dates: start: 20130213, end: 20130216
  7. PEGFILGRASTIM (PEGFILGRASTIM) [Concomitant]
     Dosage: QCYCLE
     Dates: start: 20130213, end: 20130215
  8. COTRIM (SULFAMETHOXAZOLE, TRIMETHOPRIM) [Concomitant]
     Dosage: QCYCLE
     Dates: start: 20130214, end: 20130215
  9. ACICLOVIR (ACICLOVIR SODIUM) [Concomitant]

REACTIONS (2)
  - Febrile neutropenia [None]
  - Pancytopenia [None]
